FAERS Safety Report 6346760-4 (Version None)
Quarter: 2009Q3

REPORT INFORMATION
  Report Type: 
  Country: None (occurrence: None)
  Receive Date: 20090904
  Receipt Date: 20090827
  Transmission Date: 20100115
  Serious: Yes (Death, Hospitalization)
  Sender: FDA-Public Use
  Company Number: 2008-186073-NL

PATIENT
  Sex: Male

DRUGS (2)
  1. TICE BCG [Suspect]
     Indication: BLADDER CANCER
     Dosage: QW;' INVES
     Dates: start: 20071001
  2. SINTROM (CON.) [Concomitant]

REACTIONS (13)
  - ACUTE RESPIRATORY DISTRESS SYNDROME [None]
  - BOVINE TUBERCULOSIS [None]
  - CARDIAC FAILURE [None]
  - DISSEMINATED TUBERCULOSIS [None]
  - ESCHERICHIA INFECTION [None]
  - PNEUMONIA [None]
  - PNEUMONITIS [None]
  - POST PROCEDURAL HAEMORRHAGE [None]
  - RESPIRATORY FAILURE [None]
  - SEPSIS [None]
  - SPUTUM CULTURE POSITIVE [None]
  - URINARY BLADDER HAEMORRHAGE [None]
  - URINARY TRACT INFECTION [None]
